FAERS Safety Report 8411403-2 (Version None)
Quarter: 2012Q2

REPORT INFORMATION
  Report Type: 
  Country: None (occurrence: None)
  Receive Date: 20120531
  Receipt Date: 20120531
  Transmission Date: 20120825
  Serious: Yes (Hospitalization)
  Sender: FDA-Public Use
  Company Number: None

PATIENT
  Sex: Female
  Weight: 65.7716 kg

DRUGS (1)
  1. BUPROPION HYDROCHLORIDE [Suspect]
     Indication: HOT FLUSH
     Dosage: 75 MG ONE TABLET EVERY DAY BY MOUTH
     Route: 048
     Dates: start: 20120330, end: 20120406

REACTIONS (4)
  - ABDOMINAL PAIN [None]
  - CONSTIPATION [None]
  - GASTROINTESTINAL INFECTION [None]
  - HAEMATOCHEZIA [None]
